FAERS Safety Report 21602772 (Version 1)
Quarter: 2022Q4

REPORT INFORMATION
  Report Type: Report from Study
  Country: FR (occurrence: FR)
  Receive Date: 20221116
  Receipt Date: 20221116
  Transmission Date: 20230113
  Serious: Yes (Other)
  Sender: FDA-Public Use
  Company Number: FR-MYLANLABS-2022M1128411

PATIENT
  Sex: Female

DRUGS (8)
  1. PREGABALIN [Suspect]
     Active Substance: PREGABALIN
     Indication: Neurodermatitis
     Dosage: UNK
     Route: 065
  2. VENLAFAXINE [Suspect]
     Active Substance: VENLAFAXINE HYDROCHLORIDE
     Indication: Neurodermatitis
     Dosage: UNK
     Route: 065
  3. METHOTREXATE [Suspect]
     Active Substance: METHOTREXATE
     Indication: Neurodermatitis
     Dosage: 15 MILLIGRAM, QW
     Route: 065
     Dates: start: 2000
  4. METHOTREXATE [Suspect]
     Active Substance: METHOTREXATE
     Dosage: 25 MILLIGRAM, QW
     Route: 065
     Dates: start: 201812
  5. METHOTREXATE [Suspect]
     Active Substance: METHOTREXATE
     Dosage: 20 MILLIGRAM, QW
     Route: 065
  6. ALITRETINOIN [Suspect]
     Active Substance: ALITRETINOIN
     Indication: Neurodermatitis
     Dosage: 30 MILLIGRAM, QD
     Route: 065
     Dates: start: 201906
  7. ALITRETINOIN [Suspect]
     Active Substance: ALITRETINOIN
     Dosage: 10 MILLIGRAM, QD
     Route: 065
  8. TACROLIMUS [Suspect]
     Active Substance: TACROLIMUS
     Indication: Neurodermatitis
     Dosage: UNK
     Route: 061

REACTIONS (4)
  - Treatment failure [Unknown]
  - Hypercholesterolaemia [Unknown]
  - Hypertriglyceridaemia [Unknown]
  - Off label use [Unknown]
